FAERS Safety Report 8192018-0 (Version None)
Quarter: 2012Q1

REPORT INFORMATION
  Report Type: 
  Country: None (occurrence: None)
  Receive Date: 20120307
  Receipt Date: 20120305
  Transmission Date: 20120608
  Serious: Yes (Other)
  Sender: FDA-Public Use
  Company Number: PHEH2012US005065

PATIENT
  Sex: Male

DRUGS (3)
  1. DIOVAN HCT [Suspect]
     Dosage: 1 DF (320/25 MG), UNK
  2. METOPROLOL SUCCINATE [Suspect]
  3. NEXIUM [Suspect]

REACTIONS (4)
  - RENAL CANCER [None]
  - GALLBLADDER CANCER [None]
  - GASTROINTESTINAL PAIN [None]
  - ABDOMINAL DISCOMFORT [None]
